FAERS Safety Report 9409006 (Version 2)
Quarter: 2013Q2

REPORT INFORMATION
  Report Type: Spontaneous
  Country: US (occurrence: None)
  Receive Date: 20130326
  Receipt Date: 20130514
  Transmission Date: 20140414
  Serious: Yes (Other)
  Sender: FDA-Public Use
  Company Number: 2013-005

PATIENT
  Age: 54 Year
  Sex: Female
  Weight: 78.9 kg

DRUGS (3)
  1. PRIALT (ZICONOTIDE) INTRATHECAL INFUSION [Suspect]
     Indication: BACK PAIN
     Route: 037
     Dates: start: 20120417, end: 20120511
  2. PRIALT (ZICONOTIDE) INTRATHECAL INFUSION [Suspect]
     Indication: PAIN
     Route: 037
     Dates: start: 20120417, end: 20120511
  3. OXYCODONE HCL [Concomitant]

REACTIONS (17)
  - Transient ischaemic attack [None]
  - Fungal infection [None]
  - Abdominal pain upper [None]
  - Dysphemia [None]
  - Anger [None]
  - Abnormal behaviour [None]
  - Emotional distress [None]
  - Muscle spasms [None]
  - Burning sensation [None]
  - Dry mouth [None]
  - Disturbance in attention [None]
  - Headache [None]
  - Pain [None]
  - Confusional state [None]
  - Mania [None]
  - Dysarthria [None]
  - Depression [None]
